FAERS Safety Report 6536441-6 (Version None)
Quarter: 2009Q4

REPORT INFORMATION
  Report Type: 
  Country: None (occurrence: None)
  Receive Date: 20091229
  Receipt Date: 20091006
  Transmission Date: 20100525
  Serious: No
  Sender: FDA-Public Use
  Company Number: 1000009299

PATIENT
  Sex: Male

DRUGS (4)
  1. BYSTOLIC [Suspect]
     Dosage: ORAL
     Route: 048
  2. LISINOPRIL [Suspect]
  3. ATENOLOL [Suspect]
  4. BENICAR [Suspect]

REACTIONS (2)
  - DIZZINESS [None]
  - HEADACHE [None]
